FAERS Safety Report 16762152 (Version 2)
Quarter: 2019Q3

REPORT INFORMATION
  Report Type: Report from Study
  Country: US (occurrence: US)
  Receive Date: 20190830
  Receipt Date: 20190910
  Transmission Date: 20191005
  Serious: Yes (Hospitalization)
  Sender: FDA-Public Use
  Company Number: US-EXELIXIS-XL18419023420

PATIENT
  Age: 70 Year
  Sex: Male

DRUGS (19)
  1. ATEZOLIZUMAB. [Suspect]
     Active Substance: ATEZOLIZUMAB
     Indication: HORMONE-REFRACTORY PROSTATE CANCER
     Dosage: 1200 MG, Q3WEEKS
     Route: 042
     Dates: start: 20190819
  2. ATORVASTATIN [Concomitant]
     Active Substance: ATORVASTATIN
  3. ALLOPURINOL. [Concomitant]
     Active Substance: ALLOPURINOL
  4. POTASSIUM CHLORIDE. [Concomitant]
     Active Substance: POTASSIUM CHLORIDE
  5. ELIGARD [Concomitant]
     Active Substance: LEUPROLIDE ACETATE
  6. FLONASE [Concomitant]
     Active Substance: FLUTICASONE PROPIONATE
  7. VITAMIN D 2000 [Concomitant]
     Active Substance: VITAMIN D NOS
  8. PROAIR HFA [Concomitant]
     Active Substance: ALBUTEROL SULFATE
  9. AMLODIPINE [Concomitant]
     Active Substance: AMLODIPINE BESYLATE
  10. CALTRATE [Concomitant]
     Active Substance: CALCIUM CARBONATE
  11. SYMBICORT [Concomitant]
     Active Substance: BUDESONIDE\FORMOTEROL FUMARATE DIHYDRATE
  12. XL184 [Suspect]
     Active Substance: CABOZANTINIB
     Indication: HORMONE-REFRACTORY PROSTATE CANCER
     Dosage: 40 MG, QD
     Route: 048
     Dates: start: 20190819
  13. IPRATROPIUM BROMIDE. [Concomitant]
     Active Substance: IPRATROPIUM BROMIDE
  14. METFORMIN [Concomitant]
     Active Substance: METFORMIN HYDROCHLORIDE
  15. ASPIRIN. [Concomitant]
     Active Substance: ASPIRIN
  16. MONTELUKAST [Concomitant]
     Active Substance: MONTELUKAST SODIUM
  17. VALSARTAN. [Concomitant]
     Active Substance: VALSARTAN
  18. SOTALOL. [Concomitant]
     Active Substance: SOTALOL
  19. EPIPEN [Concomitant]
     Active Substance: EPINEPHRINE

REACTIONS (2)
  - Deep vein thrombosis [Not Recovered/Not Resolved]
  - Pulmonary embolism [Not Recovered/Not Resolved]

NARRATIVE: CASE EVENT DATE: 20190825
